FAERS Safety Report 4631051-X (Version None)
Quarter: 2005Q2

REPORT INFORMATION
  Report Type: 
  Country: None (occurrence: None)
  Receive Date: 20050406
  Receipt Date: 20050321
  Transmission Date: 20051028
  Serious: Yes (Death, Hospitalization)
  Sender: FDA-Public Use
  Company Number: USA050393693

PATIENT
  Age: 85 Year
  Sex: Female

DRUGS (1)
  1. ZYPREXA [Suspect]
     Indication: PARANOIA
     Dates: start: 19980101

REACTIONS (4)
  - CEREBROVASCULAR ACCIDENT [None]
  - FALL [None]
  - SUBDURAL HAEMATOMA [None]
  - THERAPY NON-RESPONDER [None]
